FAERS Safety Report 16197384 (Version 1)
Quarter: 2019Q2

REPORT INFORMATION
  Report Type: Spontaneous
  Country: JP (occurrence: JP)
  Receive Date: 20190415
  Receipt Date: 20190415
  Transmission Date: 20190711
  Serious: Yes (Other)
  Sender: FDA-Public Use
  Company Number: JP-GLAXOSMITHKLINE-JP2019JPN065815

PATIENT

DRUGS (1)
  1. ZOVIRAX [Suspect]
     Active Substance: ACYCLOVIR
     Indication: BONE MARROW TRANSPLANT
     Dosage: 200 MG, ONCE A DAY, MONDAY AND FRIDEAY
     Route: 048

REACTIONS (4)
  - Incorrect product administration duration [Unknown]
  - Dialysis [Unknown]
  - Prescribed underdose [Unknown]
  - Product use issue [Unknown]
